FAERS Safety Report 4554803-3 (Version None)
Quarter: 2005Q1

REPORT INFORMATION
  Report Type: 
  Country: None (occurrence: None)
  Receive Date: 20041227
  Receipt Date: 20040624
  Transmission Date: 20050727
  Serious: Yes (Hospitalization, Other)
  Sender: FDA-Public Use
  Company Number: 2003-05531

PATIENT
  Age: 50 Year
  Sex: Female

DRUGS (6)
  1. VIREAD [Suspect]
     Indication: HIV INFECTION
     Dosage: 300 MG, 1 IN 1 D, ORAL
     Route: 048
     Dates: start: 20021101, end: 20030501
  2. KALETRA [Concomitant]
  3. D4T (STAVUDINE) [Concomitant]
  4. LAMIVUDINE [Concomitant]
  5. HERBAL MEDICINES (HERBAL PREPARATIONS) [Concomitant]
  6. NSAIDS [Concomitant]

REACTIONS (1)
  - RENAL FAILURE [None]
